FAERS Safety Report 4443994-0 (Version None)
Quarter: 2004Q3

REPORT INFORMATION
  Report Type: 
  Country: None (occurrence: None)
  Receive Date: 20040729
  Receipt Date: 20020314
  Transmission Date: 20050211
  Serious: Yes (Hospitalization)
  Sender: FDA-Public Use
  Company Number: USA-2002-0000489

PATIENT
  Age: 16 Year
  Sex: Male

DRUGS (1)
  1. MS CONTIN [Suspect]
     Dosage: MG

REACTIONS (2)
  - OVERDOSE [None]
  - RESPIRATORY DEPRESSION [None]
